FAERS Safety Report 8854222 (Version 1)
Quarter: 2012Q4

REPORT INFORMATION
  Report Type: Spontaneous
  Country: US (occurrence: None)
  Receive Date: 20121019
  Receipt Date: 20121019
  Transmission Date: 20130627
  Serious: Yes (Death)
  Sender: FDA-Public Use
  Company Number: None

PATIENT
  Age: 54 Year
  Sex: Female
  Weight: 51.85 kg

DRUGS (2)
  1. XARELTO [Suspect]
     Indication: DVT PROPHYLAXIS
     Route: 048
     Dates: start: 20121002, end: 20121007
  2. XARELTO [Suspect]
     Indication: HIP REPLACEMENT
     Route: 048
     Dates: start: 20121002, end: 20121007

REACTIONS (2)
  - Drug interaction [None]
  - Pulmonary embolism [None]
